FAERS Safety Report 10078641 (Version 2)
Quarter: 2014Q2

REPORT INFORMATION
  Report Type: Spontaneous
  Country: US (occurrence: None)
  Receive Date: 20140411
  Receipt Date: 20140418
  Transmission Date: 20141212
  Serious: Yes (Other)
  Sender: FDA-Public Use
  Company Number: 2014-US-004100

PATIENT
  Age: 53 Year
  Sex: Female

DRUGS (1)
  1. XYREM [Suspect]
     Indication: FIBROMYALGIA
     Route: 048
     Dates: start: 201403

REACTIONS (15)
  - Autoimmune thyroiditis [None]
  - Malaise [None]
  - Performance status decreased [None]
  - Off label use [None]
  - Autoimmune thyroiditis [None]
  - Malaise [None]
  - Fibromyalgia [None]
  - Impaired driving ability [None]
  - Swelling [None]
  - Arthralgia [None]
  - Myalgia [None]
  - Dysphonia [None]
  - Vision blurred [None]
  - Feeling cold [None]
  - Pain [None]
